FAERS Safety Report 20409640 (Version 2)
Quarter: 2022Q1

REPORT INFORMATION
  Report Type: Spontaneous
  Country: JP (occurrence: JP)
  Receive Date: 20220201
  Receipt Date: 20220315
  Transmission Date: 20220424
  Serious: No
  Sender: FDA-Public Use
  Company Number: JP-GLAXOSMITHKLINE-JP2022JPN013390

PATIENT
  Sex: Female
  Weight: 57.2 kg

DRUGS (7)
  1. SOTROVIMAB [Suspect]
     Active Substance: SOTROVIMAB
     Indication: COVID-19
     Dosage: 500 MG
     Route: 041
     Dates: start: 20220123
  2. SUMATRIPTAN SUCCINATE [Suspect]
     Active Substance: SUMATRIPTAN SUCCINATE
     Indication: Headache
     Dosage: 100 MG PER DAY
     Route: 048
     Dates: start: 20220126, end: 20220201
  3. ACETAMINOPHEN [Suspect]
     Active Substance: ACETAMINOPHEN
     Indication: Pyrexia
     Dosage: 1200 MG PER DAY
     Route: 048
     Dates: start: 20220123, end: 20220202
  4. RITODRINE [Suspect]
     Active Substance: RITODRINE
     Indication: Premature labour
     Dosage: 96 MG PER DAY
     Route: 042
     Dates: start: 20220123, end: 20220201
  5. CARBOCYSTEINE [Suspect]
     Active Substance: CARBOCYSTEINE
     Indication: Cough
     Dosage: 750 MG PER DAY
     Route: 048
     Dates: start: 20220126, end: 20220130
  6. DEXTROMETHORPHAN HYDROBROMIDE [Suspect]
     Active Substance: DEXTROMETHORPHAN HYDROBROMIDE
     Indication: Cough
     Dosage: 45 MG PER DAY
     Route: 048
     Dates: start: 20220128, end: 20220201
  7. MAGNESIUM OXIDE [Suspect]
     Active Substance: MAGNESIUM OXIDE
     Indication: Constipation
     Dosage: 990 MG PER DAY
     Route: 048
     Dates: start: 20220128, end: 20220201

REACTIONS (2)
  - Exposure during pregnancy [Unknown]
  - Live birth [Unknown]
